FAERS Safety Report 7456712-9 (Version None)
Quarter: 2011Q2

REPORT INFORMATION
  Report Type: 
  Country: None (occurrence: None)
  Receive Date: 20110503
  Receipt Date: 20100520
  Transmission Date: 20111010
  Serious: Yes (Other)
  Sender: FDA-Public Use
  Company Number: US-SANOFI-AVENTIS-2010SA029618

PATIENT
  Age: 82 Year
  Sex: Female
  Weight: 48.53 kg

DRUGS (2)
  1. APIDRA [Suspect]
     Dosage: SLIDING SCALE
     Route: 058
     Dates: start: 20050101
  2. LANTUS [Suspect]
     Dosage: DOSE:8.5 UNIT(S)
     Route: 058
     Dates: start: 20050101

REACTIONS (3)
  - HYPOGLYCAEMIA [None]
  - MEDICATION ERROR [None]
  - BLOOD GLUCOSE INCREASED [None]
